FAERS Safety Report 5127350-8 (Version None)
Quarter: 2006Q4

REPORT INFORMATION
  Report Type: 
  Country: None (occurrence: None)
  Receive Date: 20061010
  Receipt Date: 20060928
  Transmission Date: 20070319
  Serious: Yes (Hospitalization)
  Sender: FDA-Public Use
  Company Number: S06-SWI-01568-01

PATIENT
  Age: 44 Year
  Sex: Female

DRUGS (4)
  1. CIPRALEX (ESCITALOPRAM) [Suspect]
     Indication: DEPRESSION
     Dates: end: 20051120
  2. REMERON [Suspect]
     Indication: DEPRESSION
     Dosage: 30 MG QD PO
     Route: 048
     Dates: start: 20050301, end: 20051120
  3. ZOLPIDEM TARTRATE [Concomitant]
  4. CODIPRONT [Concomitant]

REACTIONS (2)
  - CHOLELITHIASIS [None]
  - HEPATOCELLULAR DAMAGE [None]
